FAERS Safety Report 16894090 (Version 2)
Quarter: 2019Q4

REPORT INFORMATION
  Report Type: Other
  Country: CA (occurrence: CA)
  Receive Date: 20191008
  Receipt Date: 20191211
  Transmission Date: 20200122
  Serious: Yes (Other)
  Sender: FDA-Public Use
  Company Number: CA-PFIZER INC-2019426731

PATIENT
  Age: 40 Year
  Sex: Female

DRUGS (6)
  1. ADRIAMYCIN [Suspect]
     Active Substance: DOXORUBICIN HYDROCHLORIDE
     Indication: SYNOVIAL SARCOMA
     Dosage: UNK
     Route: 065
  2. ADRIAMYCIN [Suspect]
     Active Substance: DOXORUBICIN HYDROCHLORIDE
     Indication: LUNG NEOPLASM MALIGNANT
  3. IFEX [Suspect]
     Active Substance: IFOSFAMIDE
     Indication: SYNOVIAL SARCOMA
     Dosage: 3 G/VIAL
     Route: 042
  4. IFEX [Suspect]
     Active Substance: IFOSFAMIDE
     Indication: LUNG NEOPLASM MALIGNANT
  5. UROMITEXAN [Suspect]
     Active Substance: MESNA
     Indication: LUNG NEOPLASM MALIGNANT
  6. UROMITEXAN [Suspect]
     Active Substance: MESNA
     Indication: SYNOVIAL SARCOMA
     Dosage: 100 MG/ML
     Route: 042

REACTIONS (1)
  - Vascular pseudoaneurysm [Recovering/Resolving]
